FAERS Safety Report 20746324 (Version 2)
Quarter: 2022Q2

REPORT INFORMATION
  Report Type: Report from Study
  Country: BR (occurrence: BR)
  Receive Date: 20220425
  Receipt Date: 20220428
  Transmission Date: 20220721
  Serious: Yes (Hospitalization)
  Sender: FDA-Public Use
  Company Number: BR-PFIZER INC-202200611287

PATIENT
  Age: 64 Year
  Sex: Female
  Weight: 36.1 kg

DRUGS (23)
  1. SUNITINIB MALATE [Suspect]
     Active Substance: SUNITINIB MALATE
     Indication: Metastatic renal cell carcinoma
     Dosage: ONCE DAILY (QD) FOR 4 WEEKS AND THEN OFF TREATMENT FOR 2 WEEKS
     Route: 048
     Dates: start: 20180109, end: 20180426
  2. SUNITINIB MALATE [Suspect]
     Active Substance: SUNITINIB MALATE
     Dosage: 37.5 MILLIGRAM, QD
     Route: 048
     Dates: start: 20180512, end: 20211111
  3. SUNITINIB MALATE [Suspect]
     Active Substance: SUNITINIB MALATE
     Dosage: 37.5 MILLIGRAM, QD
     Route: 048
     Dates: start: 20211209, end: 20220128
  4. DIPYRONE [Concomitant]
     Active Substance: DIPYRONE
     Dosage: 500 MILLIGRAM
     Dates: start: 20180202
  5. SIMVASTATIN [Concomitant]
     Active Substance: SIMVASTATIN
     Dosage: 20 MILLIGRAM
     Dates: start: 20180427
  6. UREA [Concomitant]
     Active Substance: UREA
     Dosage: 10 %
     Dates: start: 20190516
  7. FUROSEMIDE [Concomitant]
     Active Substance: FUROSEMIDE
     Dosage: 40 MILLIGRAM
     Dates: start: 20200329
  8. BUTYLSCOPOLAMINE BROMIDE [Concomitant]
     Active Substance: BUTYLSCOPOLAMINE BROMIDE
     Dosage: 16.6 MILLIGRAM
     Dates: start: 20200508
  9. AMOXICILLIN\CLAVULANIC ACID [Concomitant]
     Active Substance: AMOXICILLIN\CLAVULANIC ACID
     Dosage: 1750 MILLIGRAM
     Dates: start: 20210120
  10. CLONIDINE [Concomitant]
     Active Substance: CLONIDINE
     Dosage: 0.1 MILLIGRAM
     Dates: start: 20210727
  11. AMLODIPINE [Concomitant]
     Active Substance: AMLODIPINE BESYLATE
     Dosage: 10 MILLIGRAM
     Dates: start: 20210727
  12. ALBUTEROL [Concomitant]
     Active Substance: ALBUTEROL
     Dosage: 100 MICROGRAM
     Dates: start: 20210727
  13. ATENOLOL [Concomitant]
     Active Substance: ATENOLOL
     Dosage: 50 MILLIGRAM
     Dates: start: 20210727
  14. HYDRALAZINE [Concomitant]
     Active Substance: HYDRALAZINE HYDROCHLORIDE
     Dosage: 75 MILLIGRAM
     Dates: start: 20210727
  15. DEXAMETHASONE [Concomitant]
     Active Substance: DEXAMETHASONE
     Dosage: 8 MILLIGRAM
     Dates: start: 20210727
  16. NICOTINE [Concomitant]
     Active Substance: NICOTINE
     Dosage: 21 MILLIGRAM
     Dates: start: 20210727
  17. THIAMINE [Concomitant]
     Active Substance: THIAMINE
     Dosage: 300 MILLIGRAM
     Dates: start: 20210727
  18. HYDROCHLOROTHIAZIDE [Concomitant]
     Active Substance: HYDROCHLOROTHIAZIDE
     Dosage: 25 MILLIGRAM
     Dates: start: 20210727
  19. OMEPRAZOLE [Concomitant]
     Active Substance: OMEPRAZOLE
     Dosage: 20 MILLIGRAM
     Dates: start: 20210727
  20. ALBUTEROL [Concomitant]
     Active Substance: ALBUTEROL
     Dosage: 0.1 MILLIGRAM
     Dates: start: 20211120
  21. IPRATROPIUM BROMIDE [Concomitant]
     Active Substance: IPRATROPIUM BROMIDE
     Dosage: 0.4 MILLIGRAM
     Dates: start: 20211120
  22. PURAN [Concomitant]
     Active Substance: LEVOTHYROXINE SODIUM
     Dosage: 200 DOSAGE FORM
     Dates: start: 20220310
  23. LOSARTAN [Concomitant]
     Active Substance: LOSARTAN
     Dosage: 25 MILLIGRAM
     Dates: start: 20220407

REACTIONS (1)
  - Anaemia [Not Recovered/Not Resolved]

NARRATIVE: CASE EVENT DATE: 20220419
